FAERS Safety Report 8789709 (Version 1)
Quarter: 2012Q4

REPORT INFORMATION
  Report Type: 
  Country: US (occurrence: None)
  Receive Date: 20120911
  Receipt Date: 20120911
  Transmission Date: 20130627
  Serious: Yes (Death)
  Sender: FDA-Public Use
  Company Number: None

PATIENT
  Sex: Female
  Weight: 109 kg

DRUGS (1)
  1. DOXORUBICIN HYDROCHLORIDE [Suspect]

REACTIONS (3)
  - Chest pain [None]
  - Dyspnoea [None]
  - Ejection fraction decreased [None]
